FAERS Safety Report 14880647 (Version 1)
Quarter: 2018Q2

REPORT INFORMATION
  Report Type: Spontaneous
  Country: US (occurrence: US)
  Receive Date: 20180425
  Receipt Date: 20180425
  Transmission Date: 20180711
  Serious: No
  Sender: FDA-Public Use
  Company Number: None

PATIENT
  Age: 51 Year
  Sex: Female

DRUGS (3)
  1. INLYTA [Suspect]
     Active Substance: AXITINIB
     Indication: MALIGNANT NEOPLASM OF RENAL PELVIS
     Route: 048
     Dates: start: 20180303
  2. LEVOTHYROXINE. [Concomitant]
     Active Substance: LEVOTHYROXINE
  3. VENTOLIN [Concomitant]
     Active Substance: ALBUTEROL SULFATE

REACTIONS (4)
  - Ulcer haemorrhage [None]
  - Erythema [None]
  - Renal pain [None]
  - Nasal discomfort [None]

NARRATIVE: CASE EVENT DATE: 20180424
